FAERS Safety Report 16286601 (Version 1)
Quarter: 2019Q2

REPORT INFORMATION
  Report Type: Report from Study
  Country: None (occurrence: GB)
  Receive Date: 20190508
  Receipt Date: 20190508
  Transmission Date: 20190711
  Serious: Yes (Other)
  Sender: FDA-Public Use
  Company Number: GB-US WORLDMEDS, LLC-USW201905-000892

PATIENT
  Sex: Male

DRUGS (9)
  1. APOMORPHINE HYDROCHLORIDE [Suspect]
     Active Substance: APOMORPHINE HYDROCHLORIDE
     Route: 058
     Dates: start: 20180320
  2. RIVASTIGIMINE [Concomitant]
     Indication: PARKINSON^S DISEASE
  3. SINEMET [Concomitant]
     Active Substance: CARBIDOPA\LEVODOPA
     Indication: PARKINSON^S DISEASE
  4. STALEVO [Concomitant]
     Active Substance: CARBIDOPA\ENTACAPONE\LEVODOPA
     Indication: PARKINSON^S DISEASE
  5. LACRILUBE [Concomitant]
     Indication: EYE DISORDER
  6. MACROGOL COMPOUND [Concomitant]
     Indication: PRODUCT USED FOR UNKNOWN INDICATION
  7. CARMELLOSE 1% EYEDROPS [Concomitant]
     Indication: PRODUCT USED FOR UNKNOWN INDICATION
  8. HALF SINEMET [Concomitant]
     Indication: PARKINSON^S DISEASE
  9. APOMORPHINE HYDROCHLORIDE [Suspect]
     Active Substance: APOMORPHINE HYDROCHLORIDE
     Indication: PARKINSON^S DISEASE
     Route: 058
     Dates: start: 20180904

REACTIONS (1)
  - Administration site necrosis [Unknown]
